FAERS Safety Report 18409888 (Version 1)
Quarter: 2020Q4

REPORT INFORMATION
  Report Type: Spontaneous
  Country: US (occurrence: US)
  Receive Date: 20201021
  Receipt Date: 20201021
  Transmission Date: 20210114
  Serious: Yes (Life-Threatening, Disabling)
  Sender: FDA-Public Use
  Company Number: None

PATIENT
  Age: 58 Year
  Sex: Male
  Weight: 83.25 kg

DRUGS (2)
  1. DIAZEPAM. [Suspect]
     Active Substance: DIAZEPAM
     Indication: ANXIETY
     Dates: start: 20140401, end: 20200331
  2. DIAZEPAM. [Suspect]
     Active Substance: DIAZEPAM
     Indication: BACK INJURY
     Dates: start: 20140401, end: 20200331

REACTIONS (3)
  - Insomnia [None]
  - Drug withdrawal syndrome [None]
  - Drug ineffective [None]

NARRATIVE: CASE EVENT DATE: 20191021
